FAERS Safety Report 16349897 (Version 1)
Quarter: 2019Q2

REPORT INFORMATION
  Report Type: Spontaneous
  Country: GB (occurrence: GB)
  Receive Date: 20190523
  Receipt Date: 20190523
  Transmission Date: 20190711
  Serious: Yes (Death)
  Sender: FDA-Public Use
  Company Number: GB-ALLERGAN-S06-UKI-04874-01

PATIENT
  Sex: Male
  Weight: 86 kg

DRUGS (1)
  1. CITALOPRAM HYDROBROMIDE - BP [Suspect]
     Active Substance: CITALOPRAM HYDROBROMIDE
     Indication: PRODUCT USED FOR UNKNOWN INDICATION
     Dosage: TAKEN IN AFTERNOON
     Route: 065

REACTIONS (2)
  - Foreign body in respiratory tract [Fatal]
  - Foreign body aspiration [Fatal]
